FAERS Safety Report 5849428-3 (Version None)
Quarter: 2008Q3

REPORT INFORMATION
  Report Type: 
  Country: None (occurrence: None)
  Receive Date: 20080731
  Receipt Date: 20080531
  Transmission Date: 20090109
  Serious: No
  Sender: FDA-Public Use
  Company Number: US200806000291

PATIENT
  Age: 56 Year
  Sex: Male
  Weight: 181.5 kg

DRUGS (9)
  1. BYETTA [Suspect]
     Indication: TYPE 2 DIABETES MELLITUS
     Dosage: 5 UG, 2/D, SUBCUTANEOUS
     Route: 058
     Dates: start: 20080501
  2. GLUCOVANCE [Concomitant]
  3. LANTUS [Concomitant]
  4. FUROSEMIDE (FUROSEMIDE) [Concomitant]
  5. POTASSIUM GLUCONATE (POTASSIUM GLUCONATE) [Concomitant]
  6. ASPIRIN /USA/ (ACETYLSALICYLIC ACID) [Concomitant]
  7. OXYCONTIN [Concomitant]
  8. ALPRAZOLAM [Concomitant]
  9. CLONAZEPAM [Concomitant]

REACTIONS (3)
  - MUSCLE SPASMS [None]
  - SEMEN DISCOLOURATION [None]
  - WEIGHT DECREASED [None]
